FAERS Safety Report 9828606 (Version 3)
Quarter: 2014Q1

REPORT INFORMATION
  Report Type: Spontaneous
  Country: US (occurrence: US)
  Receive Date: 20140117
  Receipt Date: 20140204
  Transmission Date: 20141002
  Serious: No
  Sender: FDA-Public Use
  Company Number: US-009507513-1401USA006979

PATIENT
  Sex: Female
  Weight: 86.17 kg

DRUGS (1)
  1. IMPLANON [Suspect]
     Indication: CONTRACEPTION
     Dosage: 68 MG, UNK
     Route: 059
     Dates: end: 20140123

REACTIONS (2)
  - Medical device complication [Recovered/Resolved]
  - Incorrect drug administration duration [Unknown]
